FAERS Safety Report 16939357 (Version 7)
Quarter: 2020Q4

REPORT INFORMATION
  Report Type: Report from Study
  Country: IT (occurrence: IT)
  Receive Date: 20191021
  Receipt Date: 20201129
  Transmission Date: 20210113
  Serious: Yes (Hospitalization)
  Sender: FDA-Public Use
  Company Number: IT-ROCHE-2429987

PATIENT
  Age: 39 Year
  Sex: Female
  Weight: 52 kg

DRUGS (8)
  1. PACLITAXEL. [Suspect]
     Active Substance: PACLITAXEL
     Indication: TRIPLE NEGATIVE BREAST CANCER
     Dosage: ON 27/FEB/2019, SHE RECEIVED LAST DOSE OF PACLITAXEL (118 MG) PRIOR TO ONSET OF SERIOUS ADVERSE EVEN
     Route: 042
     Dates: start: 20181213
  2. FILGRASTIM [Suspect]
     Active Substance: FILGRASTIM
     Dosage: CYCLE 4 VISIT 1
     Route: 058
     Dates: start: 20190308, end: 20190315
  3. ATEZOLIZUMAB. [Suspect]
     Active Substance: ATEZOLIZUMAB
     Indication: TRIPLE NEGATIVE BREAST CANCER
     Dosage: ATEZOLIZUMAB WILL BE ADMINISTERED BY IV, 840 MG EVERY 2 WEEKS, FOR 10 DOSES.?ATEZOLIZUMAB MAINTENANC
     Route: 041
     Dates: start: 20181213
  4. FILGRASTIM [Suspect]
     Active Substance: FILGRASTIM
     Dosage: CYCLE 5 VISIT 1
     Route: 058
     Dates: start: 20190406, end: 20190413
  5. FILGRASTIM [Suspect]
     Active Substance: FILGRASTIM
     Dosage: CYCLE 5 VISIT 2
     Route: 058
     Dates: start: 20190410, end: 20190417
  6. EPIRUBICIN [Suspect]
     Active Substance: EPIRUBICIN
     Indication: TRIPLE NEGATIVE BREAST CANCER
     Dosage: ON 18/APR/2019, SHE RECEIVED MOST RECENT DOSE OF EPIRUBICIN (135 MG) PRIOR TO ONSET OF SERIOUS ADVER
     Route: 042
     Dates: start: 20190306
  7. CYCLOPHOSPHAMIDE. [Suspect]
     Active Substance: CYCLOPHOSPHAMIDE
     Indication: TRIPLE NEGATIVE BREAST CANCER
     Dosage: ON 18/APR/2019, SHE RECEIVED MOST RECENT DOSE OF CYCLOPHOSPHAMIDE (900 MG) PRIOR TO ONSET OF SERIOUS
     Route: 042
     Dates: start: 20190306
  8. FILGRASTIM [Suspect]
     Active Substance: FILGRASTIM
     Indication: TRIPLE NEGATIVE BREAST CANCER
     Dosage: CYCLE 4 VISIT 2
     Route: 058
     Dates: start: 20190322, end: 20190329

REACTIONS (1)
  - Acute myocardial infarction [Recovered/Resolved with Sequelae]

NARRATIVE: CASE EVENT DATE: 20190929
